FAERS Safety Report 7520441-3 (Version None)
Quarter: 2011Q2

REPORT INFORMATION
  Report Type: 
  Country: None (occurrence: None)
  Receive Date: 20110602
  Receipt Date: 20110526
  Transmission Date: 20111010
  Serious: Yes (Other)
  Sender: FDA-Public Use
  Company Number: FR-MERCK-1105USA04111

PATIENT
  Age: 88 Year
  Sex: Female

DRUGS (2)
  1. SINEMET [Suspect]
     Indication: PARKINSON'S DISEASE
     Route: 048
     Dates: end: 20110101
  2. TERCIAN [Suspect]
     Indication: AGITATION
     Route: 065
     Dates: start: 20110108, end: 20110108

REACTIONS (1)
  - DISTURBANCE IN ATTENTION [None]
